FAERS Safety Report 23790757 (Version 1)
Quarter: 2024Q2

REPORT INFORMATION
  Report Type: Spontaneous
  Country: FR (occurrence: FR)
  Receive Date: 20240427
  Receipt Date: 20240427
  Transmission Date: 20240715
  Serious: Yes (Other)
  Sender: FDA-Public Use
  Company Number: None

PATIENT
  Age: 66 Year
  Sex: Female
  Weight: 50 kg

DRUGS (3)
  1. VORICONAZOLE [Suspect]
     Active Substance: VORICONAZOLE
     Indication: Fungal infection
     Route: 042
     Dates: start: 20240124
  2. AMIKACIN [Suspect]
     Active Substance: AMIKACIN
     Indication: Lung consolidation
     Dosage: AMIKACINE
     Route: 065
     Dates: start: 20231028, end: 20231215
  3. AMIKACIN [Suspect]
     Active Substance: AMIKACIN
     Indication: Lung consolidation
     Dosage: AMIKACINE
     Route: 042
     Dates: start: 20220923, end: 20221216

REACTIONS (1)
  - Ototoxicity [Not Recovered/Not Resolved]

NARRATIVE: CASE EVENT DATE: 20240208
